FAERS Safety Report 5123243-0 (Version None)
Quarter: 2006Q4

REPORT INFORMATION
  Report Type: 
  Country: None (occurrence: None)
  Receive Date: 20061005
  Receipt Date: 20060919
  Transmission Date: 20070319
  Serious: Yes (Other)
  Sender: FDA-Public Use
  Company Number: FR200608002353

PATIENT
  Age: 76 Year
  Sex: Female
  Weight: 45 kg

DRUGS (4)
  1. FORTEO [Suspect]
     Indication: OSTEOPOROSIS
     Dosage: 20 UG, DAILY (1/D), SUBCUTANEOUS
     Route: 058
     Dates: start: 20050527
  2. FORTEO [Concomitant]
  3. PARACETAMOL W/TRAMADOL (PARACETAMOL, TRAMADOL) TABLET [Concomitant]
  4. DEROXAT /SCH/ (PAROXETINE HYDROCHLORIDE) TABLET [Concomitant]

REACTIONS (1)
  - PARKINSON'S DISEASE [None]
